FAERS Safety Report 6891112-1 (Version None)
Quarter: 2010Q3

REPORT INFORMATION
  Report Type: 
  Country: None (occurrence: None)
  Receive Date: 20100731
  Receipt Date: 20090601
  Transmission Date: 20110219
  Serious: No
  Sender: FDA-Public Use
  Company Number: US-PFIZER INC-2009222441

PATIENT
  Sex: Female
  Weight: 55.8 kg

DRUGS (3)
  1. LIPITOR [Suspect]
     Indication: BLOOD CHOLESTEROL INCREASED
     Dosage: 10 MG, 1X/DAY
     Dates: start: 20091201
  2. ZOLOFT [Concomitant]
  3. ALLEGRA [Concomitant]

REACTIONS (1)
  - ASTHENIA [None]
